FAERS Safety Report 15452748 (Version 1)
Quarter: 2018Q4

REPORT INFORMATION
  Report Type: Spontaneous
  Country: US (occurrence: US)
  Receive Date: 20181001
  Receipt Date: 20181001
  Transmission Date: 20190204
  Serious: No
  Sender: FDA-Public Use
  Company Number: US-PFIZER INC-2018388383

PATIENT
  Age: 80 Year
  Sex: Female
  Weight: 49.9 kg

DRUGS (1)
  1. EUCRISA [Suspect]
     Active Substance: CRISABOROLE
     Dosage: UNK

REACTIONS (10)
  - Condition aggravated [Unknown]
  - Drug ineffective [Unknown]
  - Hypersensitivity [Unknown]
  - Skin burning sensation [Unknown]
  - Oral discomfort [Unknown]
  - Skin swelling [Unknown]
  - Erythema [Unknown]
  - Feeling abnormal [Unknown]
  - Skin disorder [Unknown]
  - Dry mouth [Unknown]
